FAERS Safety Report 11692723 (Version 1)
Quarter: 2015Q4

REPORT INFORMATION
  Report Type: Spontaneous
  Country: US (occurrence: US)
  Receive Date: 20151103
  Receipt Date: 20151103
  Transmission Date: 20160304
  Serious: No
  Sender: FDA-Public Use
  Company Number: US-ELI_LILLY_AND_COMPANY-US201510005200

PATIENT
  Sex: Male

DRUGS (23)
  1. FLONASE                            /00908302/ [Concomitant]
     Active Substance: MOMETASONE FUROATE
  2. MAGNESII OXIDUM [Concomitant]
  3. GLIPIZIDE XL [Concomitant]
     Active Substance: GLIPIZIDE
  4. ACETAMINOPHEN. [Concomitant]
     Active Substance: ACETAMINOPHEN
  5. VITAMIN D2 OLEOSA [Concomitant]
  6. CALCIUM CARBONATE. [Concomitant]
     Active Substance: CALCIUM CARBONATE
  7. CIALIS [Concomitant]
     Active Substance: TADALAFIL
  8. STENDRA [Concomitant]
     Active Substance: AVANAFIL
  9. BENADRYL [Concomitant]
     Active Substance: DIPHENHYDRAMINE HYDROCHLORIDE
  10. FISH OIL [Concomitant]
     Active Substance: FISH OIL
  11. AXIRON [Suspect]
     Active Substance: TESTOSTERONE
     Dosage: 90 MG, QD
     Route: 065
     Dates: start: 201111
  12. VIAGRA [Concomitant]
     Active Substance: SILDENAFIL CITRATE
  13. LORATADIN [Concomitant]
     Active Substance: LORATADINE
  14. ZINC SULFATE [Concomitant]
     Active Substance: ZINC SULFATE\ZINC SULFATE ANHYDROUS
  15. IRON SULFATE [Concomitant]
     Active Substance: FERROUS SULFATE ANHYDROUS
  16. LOSARTAN. [Concomitant]
     Active Substance: LOSARTAN
  17. ASA [Concomitant]
     Active Substance: ASPIRIN
  18. ALBUTEROL SULFATE. [Concomitant]
     Active Substance: ALBUTEROL SULFATE
  19. XANAX [Concomitant]
     Active Substance: ALPRAZOLAM
  20. AXIRON [Suspect]
     Active Substance: TESTOSTERONE
     Indication: PRODUCT USED FOR UNKNOWN INDICATION
     Dosage: UNK, UNKNOWN
     Route: 065
     Dates: start: 201111
  21. METFORMIN [Concomitant]
     Active Substance: METFORMIN HYDROCHLORIDE
  22. FLOMAX [Concomitant]
     Active Substance: TAMSULOSIN HYDROCHLORIDE
  23. FOSAMAX [Concomitant]
     Active Substance: ALENDRONATE SODIUM

REACTIONS (1)
  - Underdose [Unknown]
